FAERS Safety Report 15602965 (Version 1)
Quarter: 2018Q4

REPORT INFORMATION
  Report Type: Report from Study
  Country: GR (occurrence: GR)
  Receive Date: 20181109
  Receipt Date: 20181109
  Transmission Date: 20190205
  Serious: Yes (Death)
  Sender: FDA-Public Use
  Company Number: GR-PFIZER INC-2018461969

PATIENT

DRUGS (10)
  1. 5-FLUOROURACIL [FLUOROURACIL] [Suspect]
     Active Substance: FLUOROURACIL
     Indication: ADENOCARCINOMA GASTRIC
     Dosage: 400 MG/M2, CYCLIC (BOLUS 5-FLUOROURACIL INFUSION)
     Route: 040
  2. G-CSF [Concomitant]
     Active Substance: GRANULOCYTE COLONY-STIMULATING FACTOR NOS
     Dosage: UNK (DAY 3-8)
  3. 5-FLUOROURACIL [FLUOROURACIL] [Suspect]
     Active Substance: FLUOROURACIL
     Indication: OESOPHAGEAL ADENOCARCINOMA
     Dosage: 1000 MG/M2, CYCLIC (CONTINUOUS IV INFUSION OF 1000 MG/M2 PER DAY OF 5-FLUOROURACIL ON DAYS 1, 2, 14
     Route: 042
  4. PANITUMUMAB [Suspect]
     Active Substance: PANITUMUMAB
     Indication: ADENOCARCINOMA GASTRIC
     Dosage: 6 MG/KG, CYCLIC (1-H IV INFUSION, DAYS 1 AND 14 OF EACH TREATMENT CYCLE)
     Route: 042
  5. LEUCOVORINE [Concomitant]
     Active Substance: LEUCOVORIN
     Dosage: 400 MG/M2, CYCLIC (ON DAYS 1 AND 14)
  6. CISPLATIN. [Suspect]
     Active Substance: CISPLATIN
     Indication: OESOPHAGEAL ADENOCARCINOMA
  7. DOCETAXEL. [Suspect]
     Active Substance: DOCETAXEL
     Indication: ADENOCARCINOMA GASTRIC
     Dosage: 40 MG/M2, CYCLIC (AS A 1-H INFUSION, DAYS 1 AND 14 OF EACH CYCLE, LEVEL 3)
  8. CISPLATIN. [Suspect]
     Active Substance: CISPLATIN
     Indication: ADENOCARCINOMA GASTRIC
     Dosage: 40 MG/M2, CYCLIC (AS A 2-H INFUSION ON DAYS 1 AND 14 OF EACH CYCLE)
  9. PANITUMUMAB [Suspect]
     Active Substance: PANITUMUMAB
     Indication: OESOPHAGEAL ADENOCARCINOMA
  10. DOCETAXEL. [Suspect]
     Active Substance: DOCETAXEL
     Indication: OESOPHAGEAL ADENOCARCINOMA

REACTIONS (1)
  - Myocardial infarction [Fatal]
